FAERS Safety Report 5300375-5 (Version None)
Quarter: 2007Q2

REPORT INFORMATION
  Report Type: 
  Country: None (occurrence: None)
  Receive Date: 20070411
  Receipt Date: 20070330
  Transmission Date: 20071010
  Serious: Yes (Other)
  Sender: FDA-Public Use
  Company Number: E2090-00208-SPO-JP

PATIENT
  Age: 42 Year
  Sex: Male

DRUGS (9)
  1. ZONISAMIDE [Suspect]
     Indication: EPILEPSY
     Dosage: 400 MG, 1 IN 1 D, ORAL
     Route: 048
     Dates: start: 19930501
  2. TEGRETOL [Suspect]
     Indication: EPILEPSY
     Dosage: 800 MG, ORAL
     Route: 048
     Dates: start: 19930501
  3. PHENOBARBITAL TAB [Suspect]
     Indication: EPILEPSY
     Dosage: 120 MG, ORAL
     Route: 048
     Dates: start: 19930501
  4. ALPRAZOLAM [Concomitant]
  5. ACTOS [Concomitant]
  6. TRAZODONE HCL [Concomitant]
  7. GASMOTIN (MOSAPRIDE CITRATE) [Concomitant]
  8. MAGMITT (MAGNESIUM OXIDE) [Concomitant]
  9. KINEDAK (EPALRESTAT) [Concomitant]

REACTIONS (8)
  - BLOOD ALKALINE PHOSPHATASE INCREASED [None]
  - BONE METABOLISM DISORDER [None]
  - CELLULITIS [None]
  - DIABETES MELLITUS [None]
  - OSTEOMALACIA [None]
  - PANCREATITIS CHRONIC [None]
  - SECONDARY HYPERTHYROIDISM [None]
  - VITAMIN D ABNORMAL [None]
